FAERS Safety Report 22590473 (Version 1)
Quarter: 2023Q2

REPORT INFORMATION
  Report Type: Spontaneous
  Country: CN (occurrence: CN)
  Receive Date: 20230612
  Receipt Date: 20230612
  Transmission Date: 20230721
  Serious: Yes (Hospitalization)
  Sender: FDA-Public Use
  Company Number: CN-Merck Healthcare KGaA-9406238

PATIENT
  Age: 57 Year
  Sex: Male
  Weight: 54 kg

DRUGS (5)
  1. ERBITUX [Suspect]
     Active Substance: CETUXIMAB
     Indication: Adenocarcinoma of colon
     Dosage: 400 MG, UNK (0.9 PERCENT SODIUM CHLORIDE INJECTION 250 ML)
     Route: 041
     Dates: start: 20230506, end: 20230506
  2. OXALIPLATIN [Suspect]
     Active Substance: OXALIPLATIN
     Indication: Adenocarcinoma of colon
     Dosage: 130 MG, UNKNOWN (GLUCOSE INJECTION 250 ML)
     Route: 041
     Dates: start: 20230506, end: 20230506
  3. LEUCOVORIN CALCIUM [Suspect]
     Active Substance: LEUCOVORIN CALCIUM
     Indication: Adenocarcinoma of colon
     Dosage: 0.6 G, UNKNOWN (GLUCOSE INJECTION 500 ML)
     Route: 041
     Dates: start: 20230506, end: 20230506
  4. FLUOROURACIL [Suspect]
     Active Substance: FLUOROURACIL
     Indication: Adenocarcinoma of colon
     Dosage: 0.6 G, UNKNOWN (0.9 PERCENT SODIUM CHLORIDE INJECTION 100 ML)
     Route: 041
     Dates: start: 20230506, end: 20230506
  5. FLUOROURACIL [Suspect]
     Active Substance: FLUOROURACIL
     Dosage: 1.75 ML, UNKNOWN (PUMP INJECTION, 0.9 PERCENT SODIUM CHLORIDE INJECTION 100 ML)
     Route: 065
     Dates: start: 20230506, end: 20230507

REACTIONS (1)
  - Myelosuppression [Unknown]

NARRATIVE: CASE EVENT DATE: 20230509
